FAERS Safety Report 5277045-5 (Version None)
Quarter: 2007Q1

REPORT INFORMATION
  Report Type: 
  Country: None (occurrence: None)
  Receive Date: 20070327
  Receipt Date: 20070223
  Transmission Date: 20070707
  Serious: No
  Sender: FDA-Public Use
  Company Number: US-BRISTOL-MYERS SQUIBB COMPANY-13690524

PATIENT
  Age: 47 Year
  Sex: Male
  Weight: 113 kg

DRUGS (4)
  1. ORENCIA [Suspect]
     Route: 042
     Dates: start: 20070108
  2. ARAVA [Concomitant]
  3. PLAQUENIL [Concomitant]
  4. PERCOCET [Concomitant]

REACTIONS (2)
  - CHEST DISCOMFORT [None]
  - DYSPNOEA [None]
